FAERS Safety Report 14322537 (Version 1)
Quarter: 2017Q4

REPORT INFORMATION
  Report Type: Spontaneous
  Country: GB (occurrence: GB)
  Receive Date: 20171225
  Receipt Date: 20171225
  Transmission Date: 20180321
  Serious: Yes (Other)
  Sender: FDA-Public Use
  Company Number: GB-SA-2017SA214907

PATIENT
  Age: 39 Year
  Sex: Female

DRUGS (3)
  1. CEREZYME [Suspect]
     Active Substance: IMIGLUCERASE
     Dosage: DOSE:1600 UNIT(S)
     Route: 041
     Dates: end: 20170918
  2. CEREZYME [Suspect]
     Active Substance: IMIGLUCERASE
     Dosage: DOSE:1600 UNIT(S)
     Route: 041
     Dates: start: 20171212
  3. CEREZYME [Suspect]
     Active Substance: IMIGLUCERASE
     Dosage: DOSE:1600 UNIT(S)
     Route: 041
     Dates: start: 20171030, end: 20171115

REACTIONS (6)
  - Malaise [Not Recovered/Not Resolved]
  - Urinary tract infection [Unknown]
  - Lower respiratory tract infection [Unknown]
  - Nasopharyngitis [Unknown]
  - Dysuria [Unknown]
  - Blood urine present [Unknown]

NARRATIVE: CASE EVENT DATE: 201709
